FAERS Safety Report 23657332 (Version 1)
Quarter: 2024Q1

REPORT INFORMATION
  Report Type: Spontaneous
  Country: US (occurrence: None)
  Receive Date: 20240320
  Receipt Date: 20240320
  Transmission Date: 20240410
  Serious: Yes (unspecified)
  Sender: FDA-Public Use
  Company Number: None

PATIENT
  Age: 40 Year
  Sex: Female
  Weight: 85.5 kg

DRUGS (20)
  1. BRIUMVI [Suspect]
     Active Substance: UBLITUXIMAB-XIIY
     Indication: Multiple sclerosis relapse
     Dosage: OTHER QUANTITY : 1 IV INFUSION;?OTHER FREQUENCY : INFUSED Q24 WEEKS?
     Route: 042
  2. LIPITOR [Concomitant]
     Active Substance: ATORVASTATIN CALCIUM
  3. WELLBUTRIN [Concomitant]
     Active Substance: BUPROPION HYDROCHLORIDE
  4. PRESTIQ ER [Concomitant]
  5. LUBIPROSTONE (AMITIZA) [Concomitant]
  6. PANTOPRAZOLE MAGNESIUM (PROTONIX) [Concomitant]
  7. REXULTI [Concomitant]
     Active Substance: BREXPIPRAZOLE
  8. FLOVENT [Concomitant]
     Active Substance: FLUTICASONE PROPIONATE
  9. ZYRTEC [Concomitant]
     Active Substance: CETIRIZINE HYDROCHLORIDE
  10. MONTULUKAST (SINGULAIR) [Concomitant]
  11. PRAMIPEXOLE (MIRAPEX) [Concomitant]
  12. ALBUTEROL SULFATE (VENTOLIN) HFA [Concomitant]
  13. EPINEPHRINE [Concomitant]
     Active Substance: EPINEPHRINE
  14. FLONASE ALLERGY RELIEF [Concomitant]
     Active Substance: FLUTICASONE PROPIONATE
  15. ZOFRAN [Concomitant]
     Active Substance: ONDANSETRON HYDROCHLORIDE
  16. PREDNISOLONE ACETATE OPTHAMOLIC SOLUTION [Concomitant]
  17. SUMATRIPTAN (IMITREX) [Concomitant]
  18. BRIUMVI [Concomitant]
     Active Substance: UBLITUXIMAB-XIIY
  19. CHOLECALCIFEROL [Concomitant]
     Active Substance: CHOLECALCIFEROL
  20. MELATONIN WITH L-THEANINE [Concomitant]

REACTIONS (3)
  - Seborrhoeic dermatitis [None]
  - Subcutaneous abscess [None]
  - Abscess drainage [None]

NARRATIVE: CASE EVENT DATE: 20240301
